FAERS Safety Report 4905348-X (Version None)
Quarter: 2006Q1

REPORT INFORMATION
  Report Type: 
  Country: None (occurrence: None)
  Receive Date: 20060208
  Receipt Date: 20060202
  Transmission Date: 20060701
  Serious: Yes (Hospitalization)
  Sender: FDA-Public Use
  Company Number: 2006SE00652

PATIENT
  Age: 66 Year
  Sex: Female

DRUGS (6)
  1. BLOPRESS [Suspect]
     Route: 048
  2. ACTOS [Suspect]
     Indication: DIABETES MELLITUS
     Route: 048
     Dates: start: 20040712, end: 20051208
  3. KINEDAK [Suspect]
     Route: 048
     Dates: end: 20051208
  4. EUGLUCON [Suspect]
     Route: 048
  5. NORVASC [Suspect]
     Route: 048
  6. MAINTATE [Suspect]
     Route: 048

REACTIONS (3)
  - BLOOD CREATINE PHOSPHOKINASE INCREASED [None]
  - HYPOKALAEMIA [None]
  - RHABDOMYOLYSIS [None]
